FAERS Safety Report 4395168-X (Version None)
Quarter: 2004Q3

REPORT INFORMATION
  Report Type: 
  Country: None (occurrence: None)
  Receive Date: 20040706
  Receipt Date: 20040621
  Transmission Date: 20050211
  Serious: No
  Sender: FDA-Public Use
  Company Number: 2004GB01520

PATIENT
  Age: 66 Year
  Sex: Male

DRUGS (7)
  1. PLENDIL [Suspect]
     Dosage: 2.5 MG DAILY PO
     Route: 048
     Dates: start: 20040601
  2. ATENOLOL [Concomitant]
  3. ASPIRIN [Concomitant]
  4. TAMSULOSIN [Concomitant]
  5. FINASTERIDE [Concomitant]
  6. FRUSEMIDE [Concomitant]
  7. CANDESARTAN [Concomitant]

REACTIONS (3)
  - ERECTILE DYSFUNCTION [None]
  - MUSCULOSKELETAL STIFFNESS [None]
  - OEDEMA PERIPHERAL [None]
